FAERS Safety Report 18958015 (Version 1)
Quarter: 2021Q1

REPORT INFORMATION
  Report Type: Spontaneous
  Country: IT (occurrence: IT)
  Receive Date: 20210302
  Receipt Date: 20210302
  Transmission Date: 20210420
  Serious: Yes (Congenital Anomaly, Other)
  Sender: FDA-Public Use
  Company Number: IT-LUPIN PHARMACEUTICALS INC.-2021-02641

PATIENT
  Sex: Female
  Weight: 2150 kg

DRUGS (4)
  1. FOLIC ACID. [Suspect]
     Active Substance: FOLIC ACID
     Indication: VITAMIN SUPPLEMENTATION
     Dosage: UNK
     Route: 064
  2. IRON [Suspect]
     Active Substance: IRON
     Indication: MINERAL SUPPLEMENTATION
     Dosage: UNK
     Route: 064
  3. MULTIVITAMINS [VITAMINS NOS] [Suspect]
     Active Substance: VITAMINS
     Indication: VITAMIN SUPPLEMENTATION
     Dosage: UNK
     Route: 064
  4. CALCIUM [Suspect]
     Active Substance: CALCIUM
     Indication: SUPPLEMENTATION THERAPY
     Dosage: UNK
     Route: 064

REACTIONS (18)
  - Bronchomalacia [Unknown]
  - Low birth weight baby [Unknown]
  - Iris coloboma [Unknown]
  - Pulmonary aplasia [Unknown]
  - Tracheomalacia [Unknown]
  - Microcornea [Unknown]
  - Cerebral ventricle dilatation [Unknown]
  - Intellectual disability [Unknown]
  - Corneal leukoma [Unknown]
  - Multiple congenital abnormalities [Unknown]
  - Microphthalmos [Unknown]
  - Cardiac disorder [Unknown]
  - Hypermobility syndrome [Unknown]
  - Cerebellar hypoplasia [Unknown]
  - Pulmonary artery dilatation [Unknown]
  - Foetal exposure during pregnancy [Unknown]
  - Atrial septal defect [Unknown]
  - Cardiofaciocutaneous syndrome [Unknown]
